FAERS Safety Report 8960463 (Version 1)
Quarter: 2012Q4

REPORT INFORMATION
  Report Type: Spontaneous
  Country: US (occurrence: None)
  Receive Date: 20121211
  Receipt Date: 20121211
  Transmission Date: 20130627
  Serious: Yes (Hospitalization)
  Sender: FDA-Public Use
  Company Number: None

PATIENT
  Age: 62 Year
  Sex: Male
  Weight: 153.5 kg

DRUGS (1)
  1. PHENYTOIN [Suspect]
     Indication: SEIZURE
     Dosage: MG TID PO
     Route: 048
     Dates: start: 20120720, end: 20120726

REACTIONS (8)
  - Oedema peripheral [None]
  - Erythema [None]
  - Disturbance in attention [None]
  - Insomnia [None]
  - Vision blurred [None]
  - Tongue paralysis [None]
  - Slow speech [None]
  - Drug level decreased [None]
